FAERS Safety Report 16472225 (Version 2)
Quarter: 2019Q3

REPORT INFORMATION
  Report Type: Spontaneous
  Country: FR (occurrence: FR)
  Receive Date: 20190625
  Receipt Date: 20190710
  Transmission Date: 20191004
  Serious: Yes (Death, Other)
  Sender: FDA-Public Use
  Company Number: FR-BRISTOL-MYERS SQUIBB COMPANY-BMS-2019-059535

PATIENT
  Age: 83 Year
  Sex: Female

DRUGS (20)
  1. CLAFORAN [Concomitant]
     Active Substance: CEFOTAXIME SODIUM
     Indication: BRONCHITIS
     Dosage: 3 GRAM, QD
     Route: 042
     Dates: start: 20190406, end: 20190413
  2. ROVAMYCINE [SPIRAMYCIN] [Concomitant]
     Active Substance: SPIRAMYCIN
     Indication: BRONCHITIS
     Dosage: 1 DOSAGE FORM, QD
     Route: 042
     Dates: start: 20190406, end: 20190408
  3. BISOCE [Concomitant]
     Active Substance: BISOPROLOL
     Indication: MYOCARDIAL ISCHAEMIA
     Dosage: 2.5 MILLIGRAM, QD
     Route: 048
     Dates: start: 20190406, end: 20190408
  4. ATROVENT [Concomitant]
     Active Substance: IPRATROPIUM BROMIDE
     Indication: PRODUCT USED FOR UNKNOWN INDICATION
     Dosage: 3 GRAM
     Route: 065
  5. FLUDEX [INDAPAMIDE] [Concomitant]
     Active Substance: INDAPAMIDE
     Indication: HYPERTENSION
     Dosage: 1.5 MILLIGRAM, TID (1-0-0-1-1)
     Route: 048
     Dates: end: 20190408
  6. STABLON [Concomitant]
     Active Substance: TIANEPTINE
     Indication: PRODUCT USED FOR UNKNOWN INDICATION
     Dosage: 12.5 MILLIGRAM, (2-0-1-1)
     Route: 048
     Dates: end: 20190408
  7. BRICANYL [Concomitant]
     Active Substance: TERBUTALINE SULFATE
     Indication: PRODUCT USED FOR UNKNOWN INDICATION
     Route: 065
  8. DIAMICRON [Concomitant]
     Active Substance: GLICLAZIDE
     Indication: TYPE 2 DIABETES MELLITUS
     Dosage: 60 MILLIGRAM, QD
     Route: 048
     Dates: end: 20190408
  9. JANUMET [Concomitant]
     Active Substance: METFORMIN HYDROCHLORIDE\SITAGLIPTIN PHOSPHATE
     Indication: PRODUCT USED FOR UNKNOWN INDICATION
     Dosage: UNK, BID (1-0-1)
     Route: 048
     Dates: start: 201904, end: 201904
  10. CERIS [Concomitant]
     Active Substance: TROSPIUM CHLORIDE
     Indication: PRODUCT USED FOR UNKNOWN INDICATION
     Dosage: 20 MILLIGRAM, BID (ONCE IN EVENING AND NIGHT)
     Route: 048
     Dates: end: 20190413
  11. KARDEGIC [Concomitant]
     Active Substance: ASPIRIN DL-LYSINE
     Indication: PRODUCT USED FOR UNKNOWN INDICATION
     Dosage: 75 MILLIGRAM, QD (ONCE IN AFTERNOON)
     Route: 048
     Dates: end: 20190413
  12. METFORMIN HYDROCHLORIDE. [Suspect]
     Active Substance: METFORMIN HYDROCHLORIDE
     Indication: TYPE 2 DIABETES MELLITUS
     Dosage: 3000 MILLIGRAM, QD
     Route: 048
     Dates: end: 20190408
  13. MONO TILDIEM [Concomitant]
     Active Substance: DILTIAZEM HYDROCHLORIDE
     Indication: MYOCARDIAL ISCHAEMIA
     Dosage: 300 MILLIGRAM, QD
     Route: 048
     Dates: end: 20190413
  14. ELIQUIS [Concomitant]
     Active Substance: APIXABAN
     Indication: ATRIAL FIBRILLATION
     Dosage: 5 MILLIGRAM, QD
     Route: 048
     Dates: start: 20190406, end: 20190408
  15. JANUMET [Concomitant]
     Active Substance: METFORMIN HYDROCHLORIDE\SITAGLIPTIN PHOSPHATE
     Indication: TYPE 2 DIABETES MELLITUS
     Dosage: 1 DOSAGE FORM, TID
     Route: 048
     Dates: end: 20190408
  16. LASIX [Concomitant]
     Active Substance: FUROSEMIDE
     Indication: HYPERTENSION
     Dosage: 40 MILLIGRAM, QD
     Route: 048
     Dates: start: 20190406, end: 20190408
  17. IMOVANE [Concomitant]
     Active Substance: ZOPICLONE
     Indication: PRODUCT USED FOR UNKNOWN INDICATION
     Dosage: 7.5 MILLIGRAM, BID (ONCE IN EVENING AND NIGHT)
     Route: 048
     Dates: end: 20190408
  18. FLUDEX [INDAPAMIDE] [Concomitant]
     Active Substance: INDAPAMIDE
     Indication: PRODUCT USED FOR UNKNOWN INDICATION
     Dosage: 1.5 MILLIGRAM, BID (ONCE IN MORINING AND NIGHT)
     Route: 065
     Dates: start: 201904, end: 201904
  19. IMOVANE [Concomitant]
     Active Substance: ZOPICLONE
     Indication: PRODUCT USED FOR UNKNOWN INDICATION
     Dosage: 7.5 MILLIGRAM, BID (0-0-1-1)
     Route: 048
     Dates: start: 201904, end: 201904
  20. XENETIX [Concomitant]
     Active Substance: IOBITRIDOL
     Indication: PRODUCT USED FOR UNKNOWN INDICATION
     Dosage: UNK
     Route: 042
     Dates: start: 20190406, end: 20190406

REACTIONS (5)
  - Overdose [Fatal]
  - Lactic acidosis [Fatal]
  - Acute kidney injury [Fatal]
  - Hepatic failure [Fatal]
  - Encephalopathy [Fatal]

NARRATIVE: CASE EVENT DATE: 20190408
